FAERS Safety Report 8916553 (Version 1)
Quarter: 2012Q4

REPORT INFORMATION
  Report Type: 
  Country: FR (occurrence: FR)
  Receive Date: 20121120
  Receipt Date: 20121120
  Transmission Date: 20130627
  Serious: Yes (Other)
  Sender: FDA-Public Use
  Company Number: FR-UCBSA-071026

PATIENT
  Age: 85 Year
  Sex: Male

DRUGS (10)
  1. VIMPAT [Suspect]
     Indication: CONVULSION
     Dosage: QUICK INCREASE UPTO 100 MG X 2
     Route: 048
     Dates: start: 20121105, end: 201211
  2. VIMPAT [Suspect]
     Indication: EPILEPSY
     Dosage: QUICK INCREASE UPTO 100 MG X 2
     Route: 048
     Dates: start: 20121105, end: 201211
  3. VIMPAT [Suspect]
     Indication: CONVULSION
     Dosage: UNKNOWN
     Dates: end: 2012
  4. VIMPAT [Suspect]
     Indication: EPILEPSY
     Dosage: UNKNOWN
     Dates: end: 2012
  5. KEPPRA [Concomitant]
     Indication: CONVULSION
     Route: 048
     Dates: start: 20121029, end: 20121031
  6. KEPPRA [Concomitant]
     Indication: CONVULSION
  7. LAMICTAL [Concomitant]
     Indication: EPILEPSY
     Dosage: 50 MG + 25 MG (TWICE DAILY)
     Route: 048
     Dates: start: 20121029
  8. ADANCOR [Concomitant]
     Route: 048
     Dates: start: 20121029
  9. IMOVANE [Concomitant]
     Indication: AGITATION
     Dates: start: 20121029
  10. URBANYL [Concomitant]
     Route: 048
     Dates: start: 20111102

REACTIONS (3)
  - Delirium [Recovered/Resolved]
  - Hallucination [Recovered/Resolved]
  - Confusional state [Recovered/Resolved]
